FAERS Safety Report 16994446 (Version 1)
Quarter: 2019Q4

REPORT INFORMATION
  Report Type: Spontaneous
  Country: US (occurrence: US)
  Receive Date: 20191105
  Receipt Date: 20191105
  Transmission Date: 20200122
  Serious: Yes (Life-Threatening, Hospitalization)
  Sender: FDA-Public Use
  Company Number: US-STRIDES ARCOLAB LIMITED-2019SP010988

PATIENT
  Age: 77 Year
  Sex: Male

DRUGS (1)
  1. GABAPENTIN. [Suspect]
     Active Substance: GABAPENTIN
     Indication: NEURALGIA

REACTIONS (8)
  - Respiratory distress [Unknown]
  - Dysphagia [Unknown]
  - Myasthenia gravis [Recovered/Resolved]
  - Diplopia [Unknown]
  - Muscular weakness [Unknown]
  - Asthenia [Unknown]
  - Dyspnoea [Unknown]
  - Myasthenia gravis crisis [Unknown]
